FAERS Safety Report 11212883 (Version 1)
Quarter: 2015Q2

REPORT INFORMATION
  Report Type: Spontaneous
  Country: US (occurrence: None)
  Receive Date: 20150622
  Receipt Date: 20150622
  Transmission Date: 20150821
  Serious: Yes (Life-Threatening, Hospitalization, Disabling)
  Sender: FDA-Public Use
  Company Number: None

PATIENT
  Age: 85 Year
  Sex: Female
  Weight: 79.38 kg

DRUGS (9)
  1. ZESTRIL [Suspect]
     Active Substance: LISINOPRIL
     Indication: STENT PLACEMENT
     Route: 048
     Dates: start: 20150612, end: 20150617
  2. PLAVIX [Concomitant]
     Active Substance: CLOPIDOGREL BISULFATE
  3. LATANOPROST. [Concomitant]
     Active Substance: LATANOPROST
  4. BABY ASPIRIN [Concomitant]
     Active Substance: ASPIRIN
  5. PERVITEROL [Concomitant]
  6. LOVASTATIN. [Concomitant]
     Active Substance: LOVASTATIN
  7. POTASSIUM TAB [Concomitant]
  8. EYE DROPS (ALPHAGAN) [Concomitant]
  9. RANITIDINE [Concomitant]
     Active Substance: RANITIDINE\RANITIDINE HYDROCHLORIDE

REACTIONS (6)
  - Obstructive airways disorder [None]
  - Dyspnoea [None]
  - Protrusion tongue [None]
  - Oral discomfort [None]
  - Swollen tongue [None]
  - Oral pain [None]

NARRATIVE: CASE EVENT DATE: 20150617
